FAERS Safety Report 10053212 (Version 1)
Quarter: 2014Q2

REPORT INFORMATION
  Report Type: Spontaneous
  Country: US (occurrence: US)
  Receive Date: 20140402
  Receipt Date: 20140402
  Transmission Date: 20141212
  Serious: Yes (Death)
  Sender: FDA-Public Use
  Company Number: US-GLAXOSMITHKLINE-A1067576A

PATIENT
  Age: 80 Year
  Sex: Male

DRUGS (16)
  1. VOTRIENT [Suspect]
     Indication: METASTATIC NEOPLASM
     Dosage: 800MG PER DAY
     Route: 048
     Dates: start: 20140103, end: 20140211
  2. TYLENOL [Concomitant]
  3. CARBIDOPA [Concomitant]
  4. COREG [Concomitant]
  5. VITAMIN B12 [Concomitant]
  6. CARDURA [Concomitant]
  7. LEXAPRO [Concomitant]
  8. LASIX [Concomitant]
  9. HYDRALAZINE HCL [Concomitant]
  10. IMDUR [Concomitant]
  11. OXYCODONE HYDROCHLORIDE [Concomitant]
  12. POTASSIUM [Concomitant]
  13. PROMETHAZINE HCL [Concomitant]
  14. CARAFATE [Concomitant]
  15. TRAZODONE HCL [Concomitant]
  16. XANAX [Concomitant]

REACTIONS (1)
  - Death [Fatal]
